FAERS Safety Report 10969759 (Version 12)
Quarter: 2018Q1

REPORT INFORMATION
  Report Type: Spontaneous
  Country: AR (occurrence: AR)
  Receive Date: 20150331
  Receipt Date: 20180104
  Transmission Date: 20180508
  Serious: Yes (Other)
  Sender: FDA-Public Use
  Company Number: AR-ROCHE-1557627

PATIENT
  Age: 72 Year
  Sex: Female

DRUGS (12)
  1. XOLAIR [Suspect]
     Active Substance: OMALIZUMAB
     Indication: BRONCHIECTASIS
     Dosage: 4 VIALS
     Route: 065
     Dates: start: 20130326
  2. XOLAIR [Suspect]
     Active Substance: OMALIZUMAB
     Dosage: 4 DF (150 MG, FOUR MONTHLY APPLICATIONS), QMO
     Route: 065
     Dates: start: 2013
  3. XOLAIR [Suspect]
     Active Substance: OMALIZUMAB
     Route: 065
     Dates: start: 201609
  4. XOLAIR [Suspect]
     Active Substance: OMALIZUMAB
     Route: 065
     Dates: start: 201502
  5. XOLAIR [Suspect]
     Active Substance: OMALIZUMAB
     Dosage: 2 DF (150 MG) EVERY 2 WEEKS
     Route: 065
     Dates: start: 201010
  6. XOLAIR [Suspect]
     Active Substance: OMALIZUMAB
     Indication: ASTHMA
     Dosage: FOUR MONTHLY  APPLICATIONS
     Route: 065
     Dates: start: 2013
  7. XOLAIR [Suspect]
     Active Substance: OMALIZUMAB
     Dosage: 2 DF (150 MG), EVERY 15 DAYS
     Route: 065
     Dates: start: 201705, end: 201705
  8. IPRATROPIUM [Concomitant]
     Active Substance: IPRATROPIUM
     Indication: PRODUCT USED FOR UNKNOWN INDICATION
     Dosage: UNK
     Route: 055
  9. XOLAIR [Suspect]
     Active Substance: OMALIZUMAB
     Dosage: 2 DF (150 MG)
     Route: 065
     Dates: start: 20161214, end: 20161214
  10. XOLAIR [Suspect]
     Active Substance: OMALIZUMAB
     Dosage: 2 DF (150 MG), EVERY 15 DAYS
     Route: 065
     Dates: start: 20170717
  11. XOLAIR [Suspect]
     Active Substance: OMALIZUMAB
     Route: 065
     Dates: start: 20160526, end: 201608
  12. POLPER B12 [Concomitant]
     Indication: PRODUCT USED FOR UNKNOWN INDICATION
     Dosage: UNK
     Route: 065

REACTIONS (44)
  - Pneumonia [Recovered/Resolved]
  - Pain in extremity [Recovered/Resolved]
  - Oral discomfort [Recovering/Resolving]
  - Back pain [Recovering/Resolving]
  - Nausea [Recovering/Resolving]
  - Seasonal allergy [Unknown]
  - Humerus fracture [Recovered/Resolved]
  - Tachycardia [Unknown]
  - Hypophagia [Unknown]
  - Finger deformity [Recovered/Resolved]
  - Pyrexia [Not Recovered/Not Resolved]
  - Speech disorder [Unknown]
  - Influenza [Recovering/Resolving]
  - Urinary tract infection [Recovered/Resolved]
  - Pain [Unknown]
  - Asthma [Unknown]
  - Dysphonia [Unknown]
  - Pulmonary pain [Recovered/Resolved]
  - Chest pain [Recovering/Resolving]
  - Sensitivity to weather change [Unknown]
  - Feeling abnormal [Unknown]
  - Fear [Recovering/Resolving]
  - Malaise [Not Recovered/Not Resolved]
  - Vomiting [Recovered/Resolved]
  - Stress [Unknown]
  - Vitamin B12 deficiency [Unknown]
  - Aphonia [Recovered/Resolved]
  - Hypersensitivity [Not Recovered/Not Resolved]
  - Oral pain [Recovering/Resolving]
  - Abdominal pain upper [Unknown]
  - Anxiety [Recovered/Resolved]
  - Emotional distress [Unknown]
  - Respiratory disorder [Recovering/Resolving]
  - Infective exacerbation of bronchiectasis [Recovered/Resolved]
  - Fall [Unknown]
  - Fracture [Recovered/Resolved]
  - Anaemia [Recovering/Resolving]
  - Decreased appetite [Recovering/Resolving]
  - Nasopharyngitis [Recovering/Resolving]
  - Productive cough [Recovered/Resolved]
  - Upper limb fracture [Recovered/Resolved]
  - Balance disorder [Unknown]
  - Off label use [Unknown]
  - Allergy to plants [Unknown]

NARRATIVE: CASE EVENT DATE: 201501
